FAERS Safety Report 8369086-6 (Version None)
Quarter: 2012Q2

REPORT INFORMATION
  Report Type: 
  Country: None (occurrence: None)
  Receive Date: 20120518
  Receipt Date: 20120508
  Transmission Date: 20120825
  Serious: Yes (Hospitalization, Other)
  Sender: FDA-Public Use
  Company Number: JP-SANOFI-AVENTIS-2012SA024387

PATIENT
  Age: 80 Year
  Sex: Female
  Weight: 42 kg

DRUGS (7)
  1. HUMULIN R [Suspect]
     Indication: TYPE 2 DIABETES MELLITUS
     Dosage: BID AT BREAKFAST AND DINNER.
     Route: 058
     Dates: start: 20110428
  2. INSULIN LISPRO [Concomitant]
     Dates: start: 20100318
  3. SOLOSTAR [Suspect]
     Indication: DEVICE THERAPY
     Dates: start: 20101216
  4. SOLOSTAR [Suspect]
  5. LANTUS [Suspect]
     Indication: TYPE 2 DIABETES MELLITUS
     Route: 058
     Dates: start: 20101216
  6. LANTUS [Suspect]
     Route: 058
  7. NOVORAPID [Suspect]
     Route: 058
     Dates: start: 20070101

REACTIONS (3)
  - BILE DUCT CANCER [None]
  - ALBUMINURIA [None]
  - HYPOGLYCAEMIA [None]
